FAERS Safety Report 5820931-5 (Version None)
Quarter: 2008Q3

REPORT INFORMATION
  Report Type: 
  Country: None (occurrence: None)
  Receive Date: 20080724
  Receipt Date: 20080219
  Transmission Date: 20090109
  Serious: No
  Sender: FDA-Public Use
  Company Number: US-BAYER-200810786BCC

PATIENT
  Age: 78 Year
  Sex: Female

DRUGS (1)
  1. ALEVE [Suspect]
     Indication: BACK PAIN
     Dosage: UNIT DOSE: 220 MG
     Dates: start: 20080201

REACTIONS (2)
  - BACK PAIN [None]
  - PAIN IN EXTREMITY [None]
